FAERS Safety Report 6962116-5 (Version None)
Quarter: 2010Q3

REPORT INFORMATION
  Report Type: 
  Country: None (occurrence: None)
  Receive Date: 20100901
  Receipt Date: 20100901
  Transmission Date: 20110219
  Serious: Yes (Life-Threatening)
  Sender: FDA-Public Use
  Company Number: None

PATIENT
  Sex: Male
  Weight: 79 kg

DRUGS (1)
  1. HURRICAINE BENZOCAINE 20% BEUTLICH PHARMACEUTICALS [Suspect]
     Indication: GASTROINTESTINAL TUBE INSERTION
     Dosage: UNKNOWN # OF SPRAYS/DURATION ONCE? TOP
     Route: 061
     Dates: start: 20100826, end: 20100826

REACTIONS (6)
  - BLOOD PH INCREASED [None]
  - CYANOSIS [None]
  - MENTAL STATUS CHANGES [None]
  - METHAEMOGLOBINAEMIA [None]
  - PCO2 DECREASED [None]
  - PO2 INCREASED [None]
